FAERS Safety Report 4651055-0 (Version None)
Quarter: 2005Q2

REPORT INFORMATION
  Report Type: 
  Country: None (occurrence: None)
  Receive Date: 20050503
  Receipt Date: 20050429
  Transmission Date: 20051028
  Serious: Yes (Hospitalization, Other)
  Sender: FDA-Public Use
  Company Number: PHBS2005CH06167

PATIENT
  Age: 42 Year
  Sex: Male

DRUGS (2)
  1. SANDIMMUNE [Suspect]
     Indication: PSORIASIS
     Dosage: 200 MG/D
     Route: 048
     Dates: end: 20050317
  2. LAMIVUDINE [Concomitant]
     Dosage: 100 MG/D
     Route: 048
     Dates: start: 20050307

REACTIONS (18)
  - ASCITES [None]
  - CEREBELLAR SYNDROME [None]
  - CONFUSIONAL STATE [None]
  - DISORIENTATION [None]
  - DRUG LEVEL INCREASED [None]
  - ELECTROENCEPHALOGRAM ABNORMAL [None]
  - HALLUCINATION, VISUAL [None]
  - HEPATIC CIRRHOSIS [None]
  - HEPATITIS B [None]
  - HIV TEST POSITIVE [None]
  - HYPERTENSION [None]
  - HYPERTONIA [None]
  - MICROANGIOPATHY [None]
  - MUSCULAR WEAKNESS [None]
  - RENAL FAILURE [None]
  - REVERSIBLE POSTERIOR LEUKOENCEPHALOPATHY SYNDROME [None]
  - TREMOR [None]
  - VISUAL DISTURBANCE [None]
